FAERS Safety Report 25756351 (Version 3)
Quarter: 2025Q4

REPORT INFORMATION
  Report Type: Spontaneous
  Country: AU (occurrence: AU)
  Receive Date: 20250903
  Receipt Date: 20251002
  Transmission Date: 20260117
  Serious: Yes (Other)
  Sender: TAKEDA
  Company Number: AU-TAKEDA-2025TUS076646

PATIENT
  Age: 19 Year
  Sex: Female

DRUGS (1)
  1. INTUNIV [Suspect]
     Active Substance: GUANFACINE HYDROCHLORIDE
     Indication: Product used for unknown indication
     Dosage: 2 MILLIGRAM, QD

REACTIONS (6)
  - Foetal hypokinesia [Unknown]
  - High risk pregnancy [Unknown]
  - Off label use [Unknown]
  - Pregnancy [Unknown]
  - Product dose omission in error [Unknown]
  - Withdrawal syndrome [Unknown]
